FAERS Safety Report 18471090 (Version 4)
Quarter: 2020Q4

REPORT INFORMATION
  Report Type: Spontaneous
  Country: FR (occurrence: FR)
  Receive Date: 20201106
  Receipt Date: 20201221
  Transmission Date: 20210114
  Serious: Yes (Other)
  Sender: FDA-Public Use
  Company Number: FR-LUPIN PHARMACEUTICALS INC.-2020-08235

PATIENT
  Age: 49 Year
  Sex: Female
  Weight: 60 kg

DRUGS (2)
  1. CHLORMADINONE [Concomitant]
     Active Substance: CHLORMADINONE
     Indication: ENDOMETRIOSIS
     Dosage: UNK, FOR SEVERAL YEARS
     Route: 065
  2. ROSUVASTATIN. [Suspect]
     Active Substance: ROSUVASTATIN
     Indication: HYPERCHOLESTEROLAEMIA
     Dosage: 5 MILLIGRAM
     Route: 065
     Dates: start: 2014, end: 2018

REACTIONS (2)
  - Ulnar tunnel syndrome [Recovered/Resolved]
  - Mononeuropathy [Recovered/Resolved]

NARRATIVE: CASE EVENT DATE: 201810
